FAERS Safety Report 5838126-8 (Version None)
Quarter: 2008Q3

REPORT INFORMATION
  Report Type: 
  Country: None (occurrence: None)
  Receive Date: 20080808
  Receipt Date: 20080729
  Transmission Date: 20090109
  Serious: Yes (Other)
  Sender: FDA-Public Use
  Company Number: US-JNJFOC-20080800922

PATIENT
  Age: 13 Year
  Sex: Female

DRUGS (1)
  1. TOPIRAMATE [Suspect]
     Indication: MIGRAINE PROPHYLAXIS

REACTIONS (2)
  - ANGLE CLOSURE GLAUCOMA [None]
  - BENIGN INTRACRANIAL HYPERTENSION [None]
